FAERS Safety Report 8489768-5 (Version None)
Quarter: 2012Q3

REPORT INFORMATION
  Report Type: 
  Country: None (occurrence: None)
  Receive Date: 20120705
  Receipt Date: 20120704
  Transmission Date: 20120928
  Serious: Yes (Life-Threatening)
  Sender: FDA-Public Use
  Company Number: IT-BAYER-2012-066668

PATIENT
  Age: 66 Year
  Sex: Female

DRUGS (1)
  1. ULTRAVIST 150 [Suspect]
     Dosage: 99 ML, ONCE
     Dates: start: 20120629, end: 20120629

REACTIONS (4)
  - CONVULSION [None]
  - CYANOSIS [None]
  - ANAPHYLACTIC REACTION [None]
  - MUSCLE RIGIDITY [None]
